FAERS Safety Report 7588477-4 (Version None)
Quarter: 2011Q3

REPORT INFORMATION
  Report Type: 
  Country: None (occurrence: None)
  Receive Date: 20110705
  Receipt Date: 20110628
  Transmission Date: 20111222
  Serious: Yes (Other)
  Sender: FDA-Public Use
  Company Number: US-PFIZER INC-2011095414

PATIENT
  Sex: Female

DRUGS (7)
  1. NORCO [Concomitant]
     Dosage: UNK
  2. SERTRALINE HYDROCHLORIDE [Suspect]
     Indication: DEPRESSION
     Dosage: 100 MG, UNK
     Route: 048
     Dates: start: 20100101
  3. LOPRESSOR [Concomitant]
     Indication: HYPERTENSION
     Dosage: UNK
  4. ZOLOFT [Suspect]
     Indication: DEPRESSION
     Dosage: 100 MG, HS (AT NIGHT)
     Route: 048
     Dates: start: 20101018, end: 20110316
  5. NEXIUM [Concomitant]
     Indication: GASTROOESOPHAGEAL REFLUX DISEASE
     Dosage: UNK
  6. COMBIVENT [Concomitant]
     Indication: ASTHMA
     Dosage: UNK
  7. ZESTRIL [Concomitant]
     Indication: HYPERTENSION
     Dosage: UNK

REACTIONS (3)
  - DYSPNOEA [None]
  - SWELLING [None]
  - DYSGEUSIA [None]
